FAERS Safety Report 15001077 (Version 1)
Quarter: 2018Q2

REPORT INFORMATION
  Report Type: Spontaneous
  Country: US (occurrence: US)
  Receive Date: 20180612
  Receipt Date: 20180612
  Transmission Date: 20180711
  Serious: Yes (Other)
  Sender: FDA-Public Use
  Company Number: US-JUBILANT CADISTA PHARMACEUTICALS-2018JUB00206

PATIENT
  Sex: Female
  Weight: 86.62 kg

DRUGS (6)
  1. LOSARTAN POTASSIUM. [Suspect]
     Active Substance: LOSARTAN POTASSIUM
     Indication: HYPERTENSION
     Dosage: 1 TABLETS, 1X/DAY IN MORNING
     Route: 048
     Dates: start: 201609
  2. CLOTRIMAZOLE AND BETAMETHASONE [Concomitant]
     Active Substance: BETAMETHASONE\CLOTRIMAZOLE
  3. LOSARTAN POTASSIUM. [Suspect]
     Active Substance: LOSARTAN POTASSIUM
     Indication: HYPERTENSION
     Dosage: 1 TABLETS, 1X/DAY AT NIGHT
     Route: 048
     Dates: start: 201609
  4. WARFARIN [Concomitant]
     Active Substance: WARFARIN
  5. LOSARTAN POTASSIUM. [Suspect]
     Active Substance: LOSARTAN POTASSIUM
     Dosage: 25 MG, UNK
     Dates: start: 2005
  6. FUROSEMIDE. [Concomitant]
     Active Substance: FUROSEMIDE
     Dosage: 20 MG, 1X/DAY

REACTIONS (4)
  - Cardiac valve disease [Unknown]
  - Reaction to excipient [Not Recovered/Not Resolved]
  - Anal pruritus [Not Recovered/Not Resolved]
  - Eye pruritus [Not Recovered/Not Resolved]

NARRATIVE: CASE EVENT DATE: 2005
